FAERS Safety Report 7206552-0 (Version None)
Quarter: 2011Q1

REPORT INFORMATION
  Report Type: 
  Country: None (occurrence: None)
  Receive Date: 20110103
  Receipt Date: 20101221
  Transmission Date: 20110831
  Serious: Yes (Hospitalization, Other)
  Sender: FDA-Public Use
  Company Number: PHHY2010JP88005

PATIENT
  Age: 80 Year

DRUGS (1)
  1. TEGRETOL [Suspect]
     Dosage: UNK
     Route: 048

REACTIONS (6)
  - MASTICATION DISORDER [None]
  - SPEECH DISORDER [None]
  - PARALYSIS [None]
  - TRACHEOSTOMY [None]
  - DYSPHONIA [None]
  - DYSLALIA [None]
